FAERS Safety Report 6753622 (Version 2)
Quarter: 2013Q4

REPORT INFORMATION
  Report Type: Spontaneous
  Country: US (occurrence: US)
  Receive Date: 20080911
  Receipt Date: 20131218
  Transmission Date: 20140711
  Serious: No
  Sender: FDA-Public Use
  Company Number: US-BAYER-200828192NA

PATIENT
  Age: 17 Year
  Sex: Female
  Weight: 77.1 kg

DRUGS (1)
  1. YAZ [Suspect]
     Indication: CONTRACEPTION
     Dosage: 1 DF, QD
     Route: 048
     Dates: start: 200712

REACTIONS (2)
  - Metrorrhagia [Not Recovered/Not Resolved]
  - Fungal infection [Not Recovered/Not Resolved]
